FAERS Safety Report 23773380 (Version 1)
Quarter: 2024Q2

REPORT INFORMATION
  Report Type: Spontaneous
  Country: US (occurrence: None)
  Receive Date: 20240422
  Receipt Date: 20240422
  Transmission Date: 20240716
  Serious: Yes (Death)
  Sender: FDA-Public Use
  Company Number: None

PATIENT
  Age: 70 Year
  Sex: Male

DRUGS (1)
  1. POMALYST [Suspect]
     Active Substance: POMALIDOMIDE
     Indication: Plasma cell myeloma
     Dosage: 4MG QD ORAL?
     Route: 048
     Dates: start: 20240311, end: 20240318

REACTIONS (3)
  - Acute respiratory failure [None]
  - Acute kidney injury [None]
  - Condition aggravated [None]

NARRATIVE: CASE EVENT DATE: 20240319
